FAERS Safety Report 6330798-7 (Version None)
Quarter: 2009Q3

REPORT INFORMATION
  Report Type: 
  Country: None (occurrence: None)
  Receive Date: 20090827
  Receipt Date: 20090819
  Transmission Date: 20100115
  Serious: Yes (Hospitalization)
  Sender: FDA-Public Use
  Company Number: PHHY2009JP35264

PATIENT
  Age: 62 Year
  Sex: Female

DRUGS (4)
  1. SYMMETREL [Suspect]
     Indication: PARKINSON'S DISEASE
     Dosage: 300MG
     Route: 048
     Dates: end: 20071001
  2. PARLODEL [Suspect]
     Route: 048
  3. PRAMIPEXOLE DIHYDROCHLORIDE [Concomitant]
     Indication: PARKINSON'S DISEASE
     Dosage: 1.5MG
     Dates: end: 20071001
  4. CARBIDOPA AND LEVODOPA [Concomitant]
     Indication: PARKINSON'S DISEASE
     Dosage: 500MG
     Dates: end: 20071001

REACTIONS (2)
  - CARDIOMYOPATHY [None]
  - NEUROLEPTIC MALIGNANT SYNDROME [None]
